FAERS Safety Report 12816642 (Version 1)
Quarter: 2016Q4

REPORT INFORMATION
  Report Type: Spontaneous
  Country: US (occurrence: US)
  Receive Date: 20161005
  Receipt Date: 20161005
  Transmission Date: 20170207
  Serious: No
  Sender: FDA-Public Use
  Company Number: US-AMGEN-USASP2015107598

PATIENT
  Age: 68 Year
  Sex: Female

DRUGS (1)
  1. PROLIA [Suspect]
     Active Substance: DENOSUMAB
     Indication: PRODUCT USED FOR UNKNOWN INDICATION
     Dosage: UNK
     Route: 065

REACTIONS (11)
  - Confusional state [Unknown]
  - Erythema [Unknown]
  - Somnolence [Unknown]
  - Fatigue [Unknown]
  - Swelling face [Unknown]
  - Paraesthesia [Unknown]
  - Pruritus [Unknown]
  - Bone pain [Unknown]
  - Feeling hot [Unknown]
  - Chills [Unknown]
  - Memory impairment [Unknown]
